FAERS Safety Report 20835690 (Version 1)
Quarter: 2022Q2

REPORT INFORMATION
  Report Type: Spontaneous
  Country: US (occurrence: US)
  Receive Date: 20220516
  Receipt Date: 20220516
  Transmission Date: 20220721
  Serious: No
  Sender: FDA-Public Use
  Company Number: US-PFIZER INC-202101731418

PATIENT
  Age: 59 Year

DRUGS (2)
  1. DESVENLAFAXINE SUCCINATE [Suspect]
     Active Substance: DESVENLAFAXINE SUCCINATE
     Indication: Bipolar disorder
     Dosage: UNK (INCREASED DOSAGE TO 50 MG)
  2. DESVENLAFAXINE SUCCINATE [Suspect]
     Active Substance: DESVENLAFAXINE SUCCINATE
     Indication: Major depression

REACTIONS (1)
  - Irritable bowel syndrome [Unknown]
